FAERS Safety Report 5242351-7 (Version None)
Quarter: 2007Q1

REPORT INFORMATION
  Report Type: 
  Country: None (occurrence: None)
  Receive Date: 20070216
  Receipt Date: 20070216
  Transmission Date: 20070707
  Serious: Yes (Hospitalization)
  Sender: FDA-Public Use
  Company Number: None

PATIENT
  Age: 63 Year
  Sex: Male

DRUGS (8)
  1. HYDROMORPHONE HCL [Suspect]
     Indication: PAIN
     Dosage: ONCE
  2. ASCORBIC ACID [Concomitant]
  3. DIGOXIN [Concomitant]
  4. EPOETIN [Concomitant]
  5. LISINOPRIL [Concomitant]
  6. METOPROLOL SUCCINATE [Concomitant]
  7. SERTRALINE [Concomitant]
  8. ZOCOR [Concomitant]

REACTIONS (1)
  - HYPOTENSION [None]
